FAERS Safety Report 18220590 (Version 1)
Quarter: 2020Q3

REPORT INFORMATION
  Report Type: Spontaneous
  Country: JP (occurrence: JP)
  Receive Date: 20200902
  Receipt Date: 20200902
  Transmission Date: 20201103
  Serious: Yes (Death, Hospitalization, Other)
  Sender: FDA-Public Use
  Company Number: JP-ROCHE-2655950

PATIENT
  Age: 6 Decade
  Sex: Female

DRUGS (2)
  1. PACLITAXEL. [Suspect]
     Active Substance: PACLITAXEL
     Indication: BREAST CANCER
     Route: 041
  2. AVASTIN [Suspect]
     Active Substance: BEVACIZUMAB
     Indication: BREAST CANCER
     Route: 041

REACTIONS (6)
  - Anaemia [Recovering/Resolving]
  - Oesophageal varices haemorrhage [Recovered/Resolved]
  - Gastrointestinal haemorrhage [Unknown]
  - Diarrhoea [Recovering/Resolving]
  - Hepatic failure [Fatal]
  - Gastric varices [Recovering/Resolving]

NARRATIVE: CASE EVENT DATE: 20200115
